FAERS Safety Report 17009772 (Version 1)
Quarter: 2019Q4

REPORT INFORMATION
  Report Type: Spontaneous
  Country: US (occurrence: US)
  Receive Date: 20190930
  Receipt Date: 20190930
  Transmission Date: 20200122
  Serious: No
  Sender: FDA-Public Use
  Company Number: None

PATIENT
  Sex: Female

DRUGS (1)
  1. CBDISTILLERY 33MG CBD PER SERVING FULL SPECTRUM HEMP SUPPLEMENT [Suspect]
     Active Substance: CANNABIDIOL\HERBALS
     Route: 048
     Dates: start: 20190904

REACTIONS (3)
  - Hypersensitivity [None]
  - Urticaria [None]
  - Swelling face [None]

NARRATIVE: CASE EVENT DATE: 20190904
